FAERS Safety Report 4580775-1 (Version None)
Quarter: 2005Q1

REPORT INFORMATION
  Report Type: 
  Country: None (occurrence: None)
  Receive Date: 20050214
  Receipt Date: 20040602
  Transmission Date: 20050727
  Serious: Yes (Other)
  Sender: FDA-Public Use
  Company Number: US-GLAXOSMITHKLINE-A0513054A

PATIENT
  Age: 55 Year
  Sex: Female

DRUGS (4)
  1. LAMICTAL [Suspect]
     Indication: BIPOLAR DISORDER
     Dosage: 300MG PER DAY
     Route: 048
     Dates: start: 20040201, end: 20040501
  2. THYROID TAB [Concomitant]
  3. TRAZODONE [Concomitant]
  4. ZOLOFT [Concomitant]

REACTIONS (6)
  - CONVULSION [None]
  - DERMATITIS EXFOLIATIVE [None]
  - HALLUCINATION [None]
  - LOSS OF CONSCIOUSNESS [None]
  - RASH PRURITIC [None]
  - SKIN ULCER [None]
